FAERS Safety Report 25247145 (Version 3)
Quarter: 2025Q3

REPORT INFORMATION
  Report Type: Spontaneous
  Country: US (occurrence: US)
  Receive Date: 20250428
  Receipt Date: 20250922
  Transmission Date: 20251020
  Serious: No
  Sender: TRAVERE THERAPEUTICS
  Company Number: US-TRAVERE-2025TVT00367

PATIENT
  Age: 20 Year
  Sex: Male

DRUGS (2)
  1. FILSPARI [Suspect]
     Active Substance: SPARSENTAN
     Indication: IgA nephropathy
     Route: 048
     Dates: start: 20250306
  2. FILSPARI [Suspect]
     Active Substance: SPARSENTAN
     Route: 048
     Dates: start: 202503, end: 202507

REACTIONS (5)
  - Chest pain [Unknown]
  - Headache [Unknown]
  - Hypotension [Recovered/Resolved]
  - Vision blurred [None]
  - Dizziness [Recovered/Resolved]
